FAERS Safety Report 6684024-X (Version None)
Quarter: 2010Q2

REPORT INFORMATION
  Report Type: 
  Country: None (occurrence: None)
  Receive Date: 20100416
  Receipt Date: 20100405
  Transmission Date: 20101027
  Serious: Yes (Other)
  Sender: FDA-Public Use
  Company Number: JP-PFIZER INC-2010043606

PATIENT
  Age: 37 Year
  Sex: Female

DRUGS (1)
  1. SOMAVERT [Suspect]
     Indication: ACROMEGALY
     Dosage: 10 MG, 1X/DAY
     Route: 058
     Dates: start: 20090402, end: 20091105

REACTIONS (2)
  - HEPATIC FUNCTION ABNORMAL [None]
  - PITUITARY TUMOUR RECURRENT [None]
